FAERS Safety Report 14355758 (Version 2)
Quarter: 2018Q1

REPORT INFORMATION
  Report Type: Spontaneous
  Country: US (occurrence: US)
  Receive Date: 20180105
  Receipt Date: 20180112
  Transmission Date: 20180509
  Serious: Yes (Hospitalization, Other)
  Sender: FDA-Public Use
  Company Number: US-SAOL THERAPEUTICS-2017SAO03448

PATIENT
  Age: 44 Year
  Sex: Male

DRUGS (16)
  1. GABAPENTIN. [Concomitant]
     Active Substance: GABAPENTIN
     Dosage: 300 MG, 2X/DAY
  2. BACLOFEN. [Suspect]
     Active Substance: BACLOFEN
     Indication: MUSCLE SPASTICITY
     Dosage: 76.98 ?G, \DAY
     Route: 037
  3. TRAZODONE [Concomitant]
     Active Substance: TRAZODONE HYDROCHLORIDE
     Dosage: 100 MG, 1X/DAY
  4. LASIX [Concomitant]
     Active Substance: FUROSEMIDE
     Dosage: 20 MG, 1X/DAY
     Route: 048
  5. DULOXETINE. [Concomitant]
     Active Substance: DULOXETINE
     Dosage: 60 MG, 1X/DAY
  6. ATARAX [Concomitant]
     Active Substance: HYDROXYZINE HYDROCHLORIDE
     Dosage: 25 MG, UP TO 1X/DAY
     Route: 048
  7. VIAGRA [Concomitant]
     Active Substance: SILDENAFIL CITRATE
     Dosage: 100 MG, 1X/DAY
     Route: 048
  8. LORTAB [Concomitant]
     Active Substance: ACETAMINOPHEN\HYDROCODONE BITARTRATE
     Dosage: UNK
     Dates: end: 201712
  9. ROXICODONE [Concomitant]
     Active Substance: OXYCODONE HYDROCHLORIDE
     Dosage: UNK, UP TO 4X/DAY
     Route: 048
  10. BACLOFEN. [Suspect]
     Active Substance: BACLOFEN
     Indication: SPINAL CORD INJURY
  11. WARFARIN [Suspect]
     Active Substance: WARFARIN
  12. CYANOCOBALAMIN. [Concomitant]
     Active Substance: CYANOCOBALAMIN
     Dosage: 2000 ?G, 1X/DAY
  13. ENEMEEZ PLUS RE [Concomitant]
     Dosage: UNK, AS NEEDED
  14. ZOLPIDEM [Concomitant]
     Active Substance: ZOLPIDEM\ZOLPIDEM TARTRATE
     Dosage: 10 MG, AS NEEDED
  15. ASPIRIN. [Concomitant]
     Active Substance: ASPIRIN
     Dosage: 81 MG, 1X/DAY
  16. MENS MULTIVITAMIN PLUS [Concomitant]
     Dosage: 1 TABLETS, 1X/DAY

REACTIONS (17)
  - Gait inability [Unknown]
  - Erectile dysfunction [Unknown]
  - Meningitis [Unknown]
  - Anticoagulation drug level above therapeutic [Unknown]
  - Insomnia [Unknown]
  - Deep vein thrombosis [Unknown]
  - Malaise [Unknown]
  - Muscle spasticity [Recovering/Resolving]
  - Asthenia [Unknown]
  - Endocarditis [Unknown]
  - Arthralgia [Unknown]
  - Constipation [Recovering/Resolving]
  - Headache [Unknown]
  - Muscular weakness [Unknown]
  - Acute sinusitis [Unknown]
  - Pulmonary embolism [Unknown]
  - Complication of device insertion [Recovered/Resolved]

NARRATIVE: CASE EVENT DATE: 20120327
